FAERS Safety Report 9314657 (Version 1)
Quarter: 2013Q2

REPORT INFORMATION
  Report Type: Spontaneous
  Country: JP (occurrence: JP)
  Receive Date: 20130529
  Receipt Date: 20130529
  Transmission Date: 20140414
  Serious: Yes (Hospitalization, Disabling)
  Sender: FDA-Public Use
  Company Number: JP-BRISTOL-MYERS SQUIBB COMPANY-18793380

PATIENT
  Age: 78 Year
  Sex: Male
  Weight: 45 kg

DRUGS (3)
  1. ERBITUX SOLN FOR INF 5MG/ML [Suspect]
     Indication: NASAL SINUS CANCER
     Dosage: 18-18MAR13-580MG-1IN1WK?25-25MAR13-365MG-1IN1WK?1-1APR13-360MG-1IN1WK?250MG/M2 ON MAR13-ONG
     Route: 041
     Dates: start: 201303
  2. MAGMITT [Concomitant]
     Indication: CONSTIPATION
     Route: 048
     Dates: start: 20121014
  3. BISACODYL [Concomitant]
     Indication: CONSTIPATION
     Route: 054

REACTIONS (1)
  - Hearing impaired [Not Recovered/Not Resolved]
